FAERS Safety Report 4336507-5 (Version None)
Quarter: 2004Q2

REPORT INFORMATION
  Report Type: 
  Country: None (occurrence: None)
  Receive Date: 20040412
  Receipt Date: 20040322
  Transmission Date: 20050107
  Serious: Yes (Hospitalization)
  Sender: FDA-Public Use
  Company Number: 200410971JP

PATIENT
  Age: 79 Year
  Sex: Female

DRUGS (7)
  1. KETEK [Suspect]
     Route: 048
     Dates: start: 20040225, end: 20040225
  2. VOLTAREN [Suspect]
     Route: 048
     Dates: start: 20040225, end: 20040225
  3. NU-LOTAN [Concomitant]
     Route: 048
  4. ALFAROL [Concomitant]
     Route: 048
  5. BUFFERIN [Concomitant]
     Route: 048
  6. ADALAT [Concomitant]
     Route: 048
  7. DORNER [Concomitant]
     Route: 048

REACTIONS (5)
  - HYPOTENSION [None]
  - HYPOTHERMIA [None]
  - LOSS OF CONSCIOUSNESS [None]
  - PO2 DECREASED [None]
  - SHOCK [None]
